FAERS Safety Report 9391223 (Version 1)
Quarter: 2013Q3

REPORT INFORMATION
  Report Type: Spontaneous
  Country: FR (occurrence: FR)
  Receive Date: 20130709
  Receipt Date: 20130709
  Transmission Date: 20140515
  Serious: Yes (Death, Hospitalization, Other)
  Sender: FDA-Public Use
  Company Number: FR-ALEXION-A201301567

PATIENT
  Age: 52 Year
  Sex: Female

DRUGS (1)
  1. SOLIRIS 300MG [Suspect]
     Indication: PROPHYLAXIS AGAINST TRANSPLANT REJECTION
     Dosage: UNK
     Route: 042
     Dates: start: 20130227, end: 20130227

REACTIONS (5)
  - Myocarditis [Fatal]
  - Encephalitis [Unknown]
  - Transplant rejection [Unknown]
  - Bronchopulmonary aspergillosis [Unknown]
  - Respiratory distress [Unknown]
